FAERS Safety Report 4689069-7 (Version None)
Quarter: 2005Q2

REPORT INFORMATION
  Report Type: 
  Country: None (occurrence: None)
  Receive Date: 20050608
  Receipt Date: 20050207
  Transmission Date: 20051028
  Serious: No
  Sender: FDA-Public Use
  Company Number: 2005-BP-00324BP

PATIENT
  Age: 71 Year
  Sex: Female

DRUGS (12)
  1. SPIRIVA [Suspect]
     Indication: CHRONIC OBSTRUCTIVE PULMONARY DISEASE
     Dosage: 18 MCG (18 MCG), IH
     Route: 055
     Dates: start: 20041129
  2. SPIRIVA [Suspect]
     Indication: EMPHYSEMA
  3. SPIRIVA [Suspect]
  4. PREVACID [Concomitant]
  5. PREMARIN [Concomitant]
  6. CENTRUM SILVER (CENTRUM SILVER) [Concomitant]
  7. CALTRATE CALCIUM [Concomitant]
  8. DAYPRO [Concomitant]
  9. TYLENOL [Concomitant]
  10. HORMONE REPLACEMENT THERAPY [Concomitant]
  11. AEROBID [Concomitant]
  12. MAXAIR [Concomitant]

REACTIONS (1)
  - DRUG EFFECT DECREASED [None]
